FAERS Safety Report 5321189-6 (Version None)
Quarter: 2007Q1

REPORT INFORMATION
  Report Type: 
  Country: None (occurrence: None)
  Receive Date: 20070215
  Receipt Date: 20060710
  Transmission Date: 20070707
  Serious: Yes (Other)
  Sender: FDA-Public Use
  Company Number: 2006BH011698

PATIENT
  Age: 41 Year
  Sex: Female

DRUGS (10)
  1. EXTRANEAL [Suspect]
     Indication: RENAL FAILURE CHRONIC
     Dosage: 2 L; EVERY DAY
     Dates: start: 20060630, end: 20060705
  2. EPO [Concomitant]
  3. ROCALTROL [Concomitant]
  4. IRON SULFATETHIAMIN COMPOUND TAB [Concomitant]
  5. DOSS [Concomitant]
  6. VITAMIN CAP [Concomitant]
  7. VYTORAN [Concomitant]
  8. LANTUS [Concomitant]
  9. NOVOLOG SSI [Concomitant]
  10. ASPIRIN [Concomitant]

REACTIONS (3)
  - RASH ERYTHEMATOUS [None]
  - RASH PAPULAR [None]
  - RASH PRURITIC [None]
